FAERS Safety Report 4669561-1 (Version None)
Quarter: 2005Q2

REPORT INFORMATION
  Report Type: 
  Country: None (occurrence: None)
  Receive Date: 20050523
  Receipt Date: 20050520
  Transmission Date: 20051028
  Serious: Yes (Hospitalization)
  Sender: FDA-Public Use
  Company Number: PHBS2005CH07189

PATIENT
  Sex: Female

DRUGS (3)
  1. RISPERDAL [Suspect]
     Dosage: 4 MG/D
     Route: 048
     Dates: start: 20000101
  2. NOZINAN [Suspect]
     Dosage: 125 MG/D
     Route: 048
     Dates: start: 20000101
  3. LEPONEX [Suspect]
     Indication: SCHIZOPHRENIA
     Dosage: 600 MG/D
     Route: 048
     Dates: start: 20000101

REACTIONS (2)
  - OPHTHALMOPLEGIA [None]
  - PSYCHOTIC DISORDER [None]
